FAERS Safety Report 17430923 (Version 1)
Quarter: 2020Q1

REPORT INFORMATION
  Report Type: Spontaneous
  Country: US (occurrence: US)
  Receive Date: 20200217
  Receipt Date: 20200217
  Transmission Date: 20200409
  Serious: Yes (Death)
  Sender: FDA-Public Use
  Company Number: None

PATIENT
  Age: 45 Year
  Sex: Female

DRUGS (1)
  1. WARFARIN [Suspect]
     Active Substance: WARFARIN

REACTIONS (5)
  - Loss of personal independence in daily activities [None]
  - Aspiration [None]
  - Basal ganglia haemorrhage [None]
  - Hemiparesis [None]
  - International normalised ratio increased [None]

NARRATIVE: CASE EVENT DATE: 20191027
